FAERS Safety Report 4806650-2 (Version None)
Quarter: 2005Q4

REPORT INFORMATION
  Report Type: 
  Country: None (occurrence: None)
  Receive Date: 20051019
  Receipt Date: 20051003
  Transmission Date: 20060501
  Serious: Yes (Death, Hospitalization)
  Sender: FDA-Public Use
  Company Number: US_0506119559

PATIENT
  Age: 46 Year
  Sex: Female
  Weight: 95 kg

DRUGS (4)
  1. DULOXETINE HYDROCHLORIDE [Suspect]
     Indication: MAJOR DEPRESSION
     Dosage: 120 MG/1 DAY
     Dates: start: 20050325, end: 20050607
  2. ADVAIR DISKUS 100/50 [Concomitant]
  3. ALBUTEROL [Concomitant]
  4. COMBIVENT [Concomitant]

REACTIONS (22)
  - ASTHMA [None]
  - BLOOD BICARBONATE DECREASED [None]
  - BLOOD PH DECREASED [None]
  - BRAIN OEDEMA [None]
  - CARDIAC ARREST [None]
  - COMA [None]
  - CONDITION AGGRAVATED [None]
  - CONVULSION [None]
  - CYANOSIS [None]
  - DEPRESSED LEVEL OF CONSCIOUSNESS [None]
  - DRUG ABUSER [None]
  - DRUG SCREEN POSITIVE [None]
  - ELECTROENCEPHALOGRAM ABNORMAL [None]
  - LOSS OF CONSCIOUSNESS [None]
  - MEDICATION ERROR [None]
  - PCO2 INCREASED [None]
  - PO2 DECREASED [None]
  - PULMONARY CONGESTION [None]
  - PUPIL FIXED [None]
  - SINUS TACHYCARDIA [None]
  - SINUSITIS [None]
  - TREATMENT NONCOMPLIANCE [None]
